FAERS Safety Report 5118132-1 (Version None)
Quarter: 2006Q4

REPORT INFORMATION
  Report Type: 
  Country: None (occurrence: None)
  Receive Date: 20061002
  Receipt Date: 20060919
  Transmission Date: 20070319
  Serious: Yes (Other)
  Sender: FDA-Public Use
  Company Number: PHBS2006KR14589

PATIENT
  Age: 45 Year
  Sex: Female

DRUGS (2)
  1. ZOMETA [Suspect]
     Indication: RESORPTION BONE INCREASED
     Dates: start: 20060918
  2. FARESTON [Concomitant]
     Route: 065

REACTIONS (4)
  - DRUG HYPERSENSITIVITY [None]
  - EYE PAIN [None]
  - PERIORBITAL OEDEMA [None]
  - VOMITING [None]
